FAERS Safety Report 14979553 (Version 1)
Quarter: 2018Q2

REPORT INFORMATION
  Report Type: Spontaneous
  Country: IT (occurrence: ZA)
  Receive Date: 20180606
  Receipt Date: 20180606
  Transmission Date: 20180711
  Serious: Yes (Hospitalization, Other)
  Sender: FDA-Public Use
  Company Number: IT-PFIZER INC-2018227419

PATIENT
  Age: 50 Year
  Sex: Female

DRUGS (4)
  1. METHOTREXATE. [Suspect]
     Active Substance: METHOTREXATE
     Indication: RHEUMATOID ARTHRITIS
     Dosage: UNK
     Dates: start: 2015
  2. ORENCIA [Suspect]
     Active Substance: ABATACEPT
     Indication: RHEUMATOID ARTHRITIS
     Dosage: UNK
     Dates: start: 2015
  3. METHOTREXATE. [Suspect]
     Active Substance: METHOTREXATE
     Indication: SJOGREN^S SYNDROME
     Dosage: UNK
     Dates: start: 2015
  4. ORENCIA [Suspect]
     Active Substance: ABATACEPT
     Indication: SJOGREN^S SYNDROME
     Dosage: UNK

REACTIONS (3)
  - Disease recurrence [Recovered/Resolved]
  - Medication error [Unknown]
  - Malaria [Recovered/Resolved]
